FAERS Safety Report 5972952-X (Version None)
Quarter: 2008Q4

REPORT INFORMATION
  Report Type: 
  Country: None (occurrence: None)
  Receive Date: 20081201
  Receipt Date: 20081124
  Transmission Date: 20090506
  Serious: Yes (Life-Threatening)
  Sender: FDA-Public Use
  Company Number: PHHY2008DE29576

PATIENT
  Sex: Female
  Weight: 59.4 kg

DRUGS (4)
  1. GLEEVEC [Suspect]
     Indication: ACUTE LYMPHOCYTIC LEUKAEMIA
     Dosage: 400 MG/D
     Route: 048
     Dates: start: 20080903, end: 20081002
  2. METHOTREXATE [Suspect]
     Dosage: 15 MG, UNK
     Route: 037
     Dates: start: 20080925
  3. METHOTREXATE [Suspect]
     Dosage: 15 MG, UNK
     Route: 037
     Dates: start: 20081002
  4. RADIATION THERAPY [Suspect]
     Dosage: UNK
     Dates: start: 20080925, end: 20081002

REACTIONS (5)
  - CSF SHUNT IRRIGATION [None]
  - GRAND MAL CONVULSION [None]
  - HYDROCEPHALUS [None]
  - NUCLEAR MAGNETIC RESONANCE IMAGING BRAIN ABNORMAL [None]
  - SOMNOLENCE [None]
